FAERS Safety Report 14632680 (Version 2)
Quarter: 2018Q1

REPORT INFORMATION
  Report Type: Spontaneous
  Country: DE (occurrence: DE)
  Receive Date: 20180313
  Receipt Date: 20180316
  Transmission Date: 20180509
  Serious: Yes (Death, Hospitalization)
  Sender: FDA-Public Use
  Company Number: PHHY2018DE040806

PATIENT
  Age: 65 Year
  Sex: Male

DRUGS (2)
  1. EVEROLIMUS. [Suspect]
     Active Substance: EVEROLIMUS
     Indication: PROPHYLAXIS AGAINST TRANSPLANT REJECTION
     Dosage: 5 MG, UNK
     Route: 048
     Dates: start: 20171005, end: 20171207
  2. EVEROLIMUS. [Suspect]
     Active Substance: EVEROLIMUS
     Indication: METASTATIC RENAL CELL CARCINOMA
     Dosage: 5 MG, QD
     Route: 048
     Dates: start: 20171011

REACTIONS (2)
  - Pulmonary embolism [Fatal]
  - Back pain [Unknown]

NARRATIVE: CASE EVENT DATE: 20171130
